FAERS Safety Report 5004561-3 (Version None)
Quarter: 2006Q2

REPORT INFORMATION
  Report Type: 
  Country: None (occurrence: None)
  Receive Date: 20060512
  Receipt Date: 20060504
  Transmission Date: 20061013
  Serious: Yes (Disabling, Other)
  Sender: FDA-Public Use
  Company Number: 200511849BWH

PATIENT
  Age: 75 Year
  Sex: Male

DRUGS (6)
  1. LEVITRA [Suspect]
     Indication: ERECTILE DYSFUNCTION
     Dosage: 20 MG, BIW, ORAL
     Route: 048
     Dates: start: 20030101
  2. VIAGRA [Suspect]
     Dosage: 100 MG, OM, ORAL
     Route: 048
  3. CIALIS [Suspect]
     Dosage: 20 MG, Q2WK,  ORAL
     Route: 048
  4. TOPROL-XL [Concomitant]
  5. COUMADIN [Concomitant]
  6. ALLOPURINOL [Concomitant]

REACTIONS (3)
  - MACULAR DEGENERATION [None]
  - OPTIC ISCHAEMIC NEUROPATHY [None]
  - RETINOPATHY [None]
